FAERS Safety Report 11725562 (Version 1)
Quarter: 2015Q4

REPORT INFORMATION
  Report Type: Spontaneous
  Country: US (occurrence: US)
  Receive Date: 20151110
  Receipt Date: 20151110
  Transmission Date: 20160304
  Serious: No
  Sender: FDA-Public Use
  Company Number: US-ELI_LILLY_AND_COMPANY-US201109007587

PATIENT
  Age: 60 Year
  Sex: Female

DRUGS (1)
  1. FORTEO [Suspect]
     Active Substance: TERIPARATIDE
     Indication: OSTEOPOROSIS
     Dosage: 20 UG, QD
     Route: 065
     Dates: start: 20110909, end: 20110925

REACTIONS (8)
  - Decreased activity [Unknown]
  - Crying [Unknown]
  - Activities of daily living impaired [Unknown]
  - Depression [Recovering/Resolving]
  - Middle insomnia [Unknown]
  - Anxiety [Unknown]
  - Fear [Unknown]
  - Depressed mood [Unknown]

NARRATIVE: CASE EVENT DATE: 201109
